FAERS Safety Report 7730463-5 (Version None)
Quarter: 2011Q3

REPORT INFORMATION
  Report Type: 
  Country: None (occurrence: None)
  Receive Date: 20110901
  Receipt Date: 20110901
  Transmission Date: 20111222
  Serious: Yes (Hospitalization)
  Sender: FDA-Public Use
  Company Number: None

PATIENT
  Sex: Male
  Weight: 95.2554 kg

DRUGS (1)
  1. PRADAXA [Suspect]
     Indication: ATRIAL FIBRILLATION
     Dosage: 2 CAPSULES ONCE/DAY ORAL
     Route: 048
     Dates: start: 20110318, end: 20110702

REACTIONS (4)
  - ERUCTATION [None]
  - PYREXIA [None]
  - RASH [None]
  - FLATULENCE [None]
